FAERS Safety Report 9916245 (Version 2)
Quarter: 2014Q1

REPORT INFORMATION
  Report Type: Spontaneous
  Country: US (occurrence: US)
  Receive Date: 20140221
  Receipt Date: 20140221
  Transmission Date: 20141002
  Serious: Yes (Other)
  Sender: FDA-Public Use
  Company Number: US-GE HEALTHCARE MEDICAL DIAGNOSTICS-OSCN-PR-1004S-0088

PATIENT
  Sex: Female

DRUGS (7)
  1. GADOLINIUM (UNSPECIFIED) [Suspect]
     Indication: PRODUCT USED FOR UNKNOWN INDICATION
     Dates: start: 20010420, end: 20010420
  2. GADOLINIUM (UNSPECIFIED) [Suspect]
     Route: 042
     Dates: start: 20020325, end: 20020325
  3. GADOLINIUM (UNSPECIFIED) [Suspect]
     Dates: start: 20060524, end: 20060524
  4. MAGNEVIST [Suspect]
     Indication: PRODUCT USED FOR UNKNOWN INDICATION
     Dates: start: 20020520, end: 20020520
  5. MAGNEVIST [Suspect]
     Dates: start: 20040709, end: 20040709
  6. PROHANCE [Suspect]
     Indication: PRODUCT USED FOR UNKNOWN INDICATION
     Route: 042
     Dates: start: 20030114, end: 20030114
  7. PROHANCE [Suspect]
     Dates: start: 20061020, end: 20061020

REACTIONS (1)
  - Nephrogenic systemic fibrosis [Not Recovered/Not Resolved]
